FAERS Safety Report 9649711 (Version 4)
Quarter: 2013Q4

REPORT INFORMATION
  Report Type: Spontaneous
  Country: US (occurrence: US)
  Receive Date: 20131028
  Receipt Date: 20131209
  Transmission Date: 20140711
  Serious: Yes (Hospitalization)
  Sender: FDA-Public Use
  Company Number: US-GILEAD-2013-0086189

PATIENT
  Sex: Female

DRUGS (4)
  1. LETAIRIS [Suspect]
     Indication: PULMONARY HYPERTENSION
     Dosage: 10 MG, QD
     Dates: start: 20130326
  2. LETAIRIS [Suspect]
     Indication: KLIPPEL-TRENAUNAY SYNDROME
  3. LETAIRIS [Suspect]
     Indication: ATRIAL SEPTAL DEFECT
  4. VELETRI [Concomitant]
     Indication: PRODUCT USED FOR UNKNOWN INDICATION

REACTIONS (3)
  - Tooth infection [Unknown]
  - Hypotension [Unknown]
  - Abscess [Unknown]
